FAERS Safety Report 8398689-8 (Version None)
Quarter: 2012Q2

REPORT INFORMATION
  Report Type: 
  Country: None (occurrence: None)
  Receive Date: 20120531
  Receipt Date: 20120521
  Transmission Date: 20120825
  Serious: Yes (Other)
  Sender: FDA-Public Use
  Company Number: FR-ROCHE-1073287

PATIENT
  Sex: Female

DRUGS (1)
  1. NUTROPIN AQ [Suspect]
     Indication: PRODUCT USED FOR UNKNOWN INDICATION
     Dosage: 1.4 MG SIX DAYS PER WEEK.
     Route: 058
     Dates: start: 20111205

REACTIONS (1)
  - ALOPECIA [None]
